FAERS Safety Report 8221775-X (Version None)
Quarter: 2012Q1

REPORT INFORMATION
  Report Type: 
  Country: None (occurrence: None)
  Receive Date: 20120320
  Receipt Date: 20120320
  Transmission Date: 20120608
  Serious: No
  Sender: FDA-Public Use
  Company Number: None

PATIENT
  Age: 33 Year
  Sex: Female
  Weight: 72.574 kg

DRUGS (1)
  1. BIFERARX TAB ALA [Suspect]
     Indication: ANAEMIA
     Dosage: ONE TABLET
     Route: 048
     Dates: start: 20110827, end: 20111031

REACTIONS (8)
  - ARTHRALGIA [None]
  - MYALGIA [None]
  - ASTHENIA [None]
  - NECK PAIN [None]
  - BACK PAIN [None]
  - FATIGUE [None]
  - DISCOMFORT [None]
  - ABDOMINAL DISCOMFORT [None]
